FAERS Safety Report 4821498-0 (Version None)
Quarter: 2005Q4

REPORT INFORMATION
  Report Type: 
  Country: None (occurrence: None)
  Receive Date: 20051107
  Receipt Date: 20050920
  Transmission Date: 20060501
  Serious: No
  Sender: FDA-Public Use
  Company Number: JP-JPN-A20052225

PATIENT
  Age: 35 Year
  Sex: Male

DRUGS (8)
  1. ZEFIX [Suspect]
     Indication: HEPATITIS B
     Dosage: 100MG PER DAY
     Route: 048
     Dates: start: 20050727
  2. FLOMOX [Concomitant]
     Indication: PHARYNGITIS
     Dosage: 300MG PER DAY
     Route: 048
     Dates: start: 20050926, end: 20050930
  3. LOXONIN [Concomitant]
     Indication: PHARYNGITIS
     Dosage: 1U PER DAY
     Route: 048
     Dates: start: 20050926, end: 20050930
  4. BIOFERMIN R [Concomitant]
     Indication: PHARYNGITIS
     Dosage: 1.98G PER DAY
     Route: 048
     Dates: start: 20050926, end: 20050930
  5. CLE MAMALLET [Concomitant]
     Indication: PHARYNGITIS
     Dosage: .99G PER DAY
     Route: 048
     Dates: start: 20050926, end: 20050930
  6. UNKNOWN MEDICATION [Concomitant]
     Dates: end: 20050831
  7. NAUZELIN [Concomitant]
     Indication: NAUSEA
     Dosage: 30MG PER DAY
     Route: 048
     Dates: start: 20050730, end: 20050801
  8. TROCHES (COMP) [Concomitant]
     Indication: PHARYNGITIS
     Dosage: 4U PER DAY
     Dates: start: 20050926, end: 20050930

REACTIONS (3)
  - HEPATIC FUNCTION ABNORMAL [None]
  - NAUSEA [None]
  - TRANSAMINASES INCREASED [None]
